FAERS Safety Report 4796410-3 (Version None)
Quarter: 2005Q3

REPORT INFORMATION
  Report Type: 
  Country: None (occurrence: None)
  Receive Date: 20050916
  Receipt Date: 20040913
  Transmission Date: 20060218
  Serious: Yes (Other)
  Sender: FDA-Public Use
  Company Number: US-JNJFOC-20040904170

PATIENT
  Age: 46 Year
  Sex: Female
  Weight: 80.7403 kg

DRUGS (6)
  1. TOPAMAX [Suspect]
     Indication: APPETITE DISORDER
     Dosage: SEE IMAGE ORAL
     Route: 048
     Dates: start: 20040701
  2. EFFEXOR [Concomitant]
  3. WELLBUTRIN SR [Concomitant]
  4. PULMACORT(BUDESONIDE) [Concomitant]
  5. SYNTHROID [Concomitant]
  6. LIPITOR [Concomitant]

REACTIONS (3)
  - BLOOD PRESSURE DECREASED [None]
  - DIZZINESS [None]
  - FATIGUE [None]
